FAERS Safety Report 5764586-7 (Version None)
Quarter: 2008Q2

REPORT INFORMATION
  Report Type: 
  Country: None (occurrence: None)
  Receive Date: 20080610
  Receipt Date: 20080529
  Transmission Date: 20081010
  Serious: Yes (Other)
  Sender: FDA-Public Use
  Company Number: PFIZER INC-2008047006

PATIENT
  Sex: Male
  Weight: 99.8 kg

DRUGS (1)
  1. CHANTIX [Suspect]
     Indication: SMOKING CESSATION THERAPY
     Dates: start: 20060801, end: 20060101

REACTIONS (13)
  - ANXIETY [None]
  - BLOOD CHOLESTEROL INCREASED [None]
  - BLOOD TESTOSTERONE DECREASED [None]
  - CHEST PAIN [None]
  - EMERGENCY CARE EXAMINATION [None]
  - EMOTIONAL DISORDER [None]
  - GASTROOESOPHAGEAL REFLUX DISEASE [None]
  - HYPERTENSION [None]
  - MIGRAINE [None]
  - MUSCULAR WEAKNESS [None]
  - NIGHT SWEATS [None]
  - PANIC ATTACK [None]
  - VOMITING [None]
